FAERS Safety Report 18179428 (Version 1)
Quarter: 2020Q3

REPORT INFORMATION
  Report Type: Spontaneous
  Country: US (occurrence: US)
  Receive Date: 20200820
  Receipt Date: 20200820
  Transmission Date: 20201103
  Serious: No
  Sender: FDA-Public Use
  Company Number: US-TEVA-2020-US-1816929

PATIENT
  Sex: Female

DRUGS (10)
  1. ZYRTEC [Concomitant]
     Active Substance: CETIRIZINE HYDROCHLORIDE
  2. OMEGA 3 [Concomitant]
     Active Substance: OMEGA-3 FATTY ACIDS
  3. CALCIUM [Concomitant]
     Active Substance: CALCIUM
  4. D MANNOSE [Concomitant]
  5. RECLAST [Concomitant]
     Active Substance: ZOLEDRONIC ACID
  6. VITAMIN D3 [Concomitant]
     Active Substance: CHOLECALCIFEROL
  7. VITAMIN B12 [Concomitant]
     Active Substance: CYANOCOBALAMIN
  8. GAVISCON [Concomitant]
     Active Substance: ALUMINUM HYDROXIDE\MAGNESIUM CARBONATE
  9. COPAXONE [Suspect]
     Active Substance: GLATIRAMER ACETATE
     Indication: MULTIPLE SCLEROSIS
     Dosage: START DATE: BETWEEN 2010?2012, FORM STRENGTH AND DOSE: UNKNOWN
     Route: 065
  10. L?GLUTAMINASE [Concomitant]

REACTIONS (1)
  - Vein collapse [Unknown]
